FAERS Safety Report 10711330 (Version 1)
Quarter: 2015Q1

REPORT INFORMATION
  Report Type: Spontaneous
  Country: JP (occurrence: JP)
  Receive Date: 20150114
  Receipt Date: 20150114
  Transmission Date: 20150721
  Serious: Yes (Death, Other)
  Sender: FDA-Public Use
  Company Number: JP-BRISTOL-MYERS SQUIBB COMPANY-BMS-2014-001655

PATIENT
  Age: 76 Year
  Sex: Female

DRUGS (3)
  1. CARBOPLATIN. [Suspect]
     Active Substance: CARBOPLATIN
     Indication: SQUAMOUS CELL CARCINOMA OF HEAD AND NECK
     Dosage: 1 DF, QWK
     Route: 041
     Dates: start: 20141020, end: 20141027
  2. PACLITAXEL. [Suspect]
     Active Substance: PACLITAXEL
     Indication: SQUAMOUS CELL CARCINOMA OF HEAD AND NECK
     Dosage: 1000 MG/M2, QWK
     Route: 041
     Dates: start: 20141020, end: 20141127
  3. ERBITUX [Suspect]
     Active Substance: CETUXIMAB
     Indication: SQUAMOUS CELL CARCINOMA OF HEAD AND NECK
     Dosage: 400 MG/M2, QWK
     Route: 041
     Dates: start: 20141020, end: 20141104

REACTIONS (15)
  - Dermatitis acneiform [Unknown]
  - Dermatitis [Unknown]
  - Fatigue [Unknown]
  - Alopecia [Unknown]
  - Hypoalbuminaemia [Unknown]
  - Neutrophil count decreased [Unknown]
  - Skin reaction [Unknown]
  - Aspartate aminotransferase increased [Unknown]
  - Paronychia [Unknown]
  - Asphyxia [Fatal]
  - Constipation [Unknown]
  - Nausea [Unknown]
  - Decreased appetite [Unknown]
  - Mucosal inflammation [Unknown]
  - Haemoglobin decreased [Unknown]

NARRATIVE: CASE EVENT DATE: 20141209
